FAERS Safety Report 9085846 (Version 1)
Quarter: 2013Q1

REPORT INFORMATION
  Report Type: Report from Study
  Country: CL (occurrence: CL)
  Receive Date: 20130218
  Receipt Date: 20130218
  Transmission Date: 20140127
  Serious: Yes (Other)
  Sender: FDA-Public Use
  Company Number: CL-ACCORD-016414

PATIENT
  Age: 36 Year
  Sex: Male

DRUGS (9)
  1. COTRIMOXAZOLE [Concomitant]
     Indication: PROPHYLAXIS
     Dosage: 1 TABLET ON MONDAY,?WEDNESDAY AND FRIDAY, UNTIL DAY +180
  2. COLONY STIMULATING FACTORS [Concomitant]
     Indication: PROPHYLAXIS
     Dosage: 300 MCG SC / DAY FROM DAY + 4 AND TO?NEUTROPHIL RECOVERY
  3. ACYCLOVIR [Concomitant]
     Indication: PROPHYLAXIS
  4. CIPROFLOXACIN [Concomitant]
     Indication: PROPHYLAXIS
  5. CARMUSTINE [Suspect]
     Indication: HODGKIN^S DISEASE
  6. CYTARABINE [Suspect]
     Indication: HODGKIN^S DISEASE
     Dosage: 800-1600 MG/M2
  7. MELPHALAN [Suspect]
     Indication: HODGKIN^S DISEASE
  8. FLUCONAZOLE [Concomitant]
     Indication: PROPHYLAXIS
     Dosage: FROM DAY -7 TO DAY +60
     Route: 048
  9. ETOPOSIDE [Suspect]
     Indication: HODGKIN^S DISEASE
     Dosage: 400-800 MG/M2

REACTIONS (4)
  - Mucosal inflammation [Unknown]
  - Rash [Unknown]
  - Transfusion reaction [Unknown]
  - Off label use [Unknown]
